FAERS Safety Report 8309681-3 (Version None)
Quarter: 2012Q2

REPORT INFORMATION
  Report Type: 
  Country: None (occurrence: None)
  Receive Date: 20120423
  Receipt Date: 20120409
  Transmission Date: 20120825
  Serious: Yes (Other)
  Sender: FDA-Public Use
  Company Number: 2012MA004864

PATIENT

DRUGS (1)
  1. CARBAMAZEPINE [Suspect]

REACTIONS (5)
  - NERVOUS SYSTEM DISORDER [None]
  - CONVULSION [None]
  - TOXICITY TO VARIOUS AGENTS [None]
  - ANTICONVULSANT DRUG LEVEL BELOW THERAPEUTIC [None]
  - ANTICONVULSANT DRUG LEVEL ABOVE THERAPEUTIC [None]
